FAERS Safety Report 22363755 (Version 1)
Quarter: 2023Q2

REPORT INFORMATION
  Report Type: Spontaneous
  Country: US (occurrence: US)
  Receive Date: 20230525
  Receipt Date: 20230525
  Transmission Date: 20230722
  Serious: No
  Sender: FDA-Public Use
  Company Number: US-Accord-295913

PATIENT
  Sex: Female
  Weight: 63.5 kg

DRUGS (2)
  1. QUETIAPINE [Suspect]
     Active Substance: QUETIAPINE
     Indication: Insomnia
     Route: 048
  2. VALIUM [Concomitant]
     Active Substance: DIAZEPAM
     Dosage: 10MG /AT BEDTIME

REACTIONS (3)
  - Drug ineffective for unapproved indication [Unknown]
  - Gait disturbance [Not Recovered/Not Resolved]
  - Speech disorder [Not Recovered/Not Resolved]
